FAERS Safety Report 8465313-5 (Version None)
Quarter: 2012Q2

REPORT INFORMATION
  Report Type: 
  Country: None (occurrence: None)
  Receive Date: 20120626
  Receipt Date: 20120618
  Transmission Date: 20120825
  Serious: Yes (Other)
  Sender: FDA-Public Use
  Company Number: US-BAYER-2012-061840

PATIENT
  Age: 26 Year
  Sex: Female

DRUGS (4)
  1. YAZ [Suspect]
     Indication: CONTRACEPTION
  2. YASMIN [Suspect]
     Indication: CONTRACEPTION
  3. YASMIN [Suspect]
     Indication: HORMONE LEVEL ABNORMAL
  4. YAZ [Suspect]
     Indication: HORMONE LEVEL ABNORMAL

REACTIONS (8)
  - EMOTIONAL DISTRESS [None]
  - ALOPECIA [None]
  - GALLBLADDER INJURY [None]
  - CHOLELITHIASIS [None]
  - INJURY [None]
  - PSYCHOLOGICAL TRAUMA [None]
  - ANXIETY [None]
  - PAIN [None]
